FAERS Safety Report 19256797 (Version 1)
Quarter: 2021Q2

REPORT INFORMATION
  Report Type: Spontaneous
  Country: FR (occurrence: FR)
  Receive Date: 20210513
  Receipt Date: 20210513
  Transmission Date: 20210717
  Serious: Yes (Hospitalization, Other)
  Sender: FDA-Public Use
  Company Number: FR-GLAXOSMITHKLINE-FRCH2021027734

PATIENT
  Age: 26 Year
  Sex: Male

DRUGS (3)
  1. THC [Suspect]
     Active Substance: DRONABINOL
     Indication: PRODUCT USED FOR UNKNOWN INDICATION
     Dosage: UNK, (SEVERAL CATCHES / DAY FOR SEVERAL YEARS)
     Route: 055
  2. CANNABIDIOL [Suspect]
     Active Substance: CANNABIDIOL
     Indication: PRODUCT USED FOR UNKNOWN INDICATION
     Dosage: UNK, (SEVERAL TIMES / D)
     Route: 065
  3. NICOTINE. [Suspect]
     Active Substance: NICOTINE
     Indication: PRODUCT USED FOR UNKNOWN INDICATION
     Dosage: UNK
     Route: 055

REACTIONS (2)
  - Substance use disorder [Not Recovered/Not Resolved]
  - Confirmed e-cigarette or vaping product use associated lung injury [Recovered/Resolved]
